FAERS Safety Report 12421399 (Version 2)
Quarter: 2016Q2

REPORT INFORMATION
  Report Type: Spontaneous
  Country: US (occurrence: US)
  Receive Date: 20160531
  Receipt Date: 20160623
  Transmission Date: 20160815
  Serious: Yes (Other)
  Sender: FDA-Public Use
  Company Number: US-JNJFOC-20160524861

PATIENT
  Age: 51 Year
  Sex: Female
  Weight: 78.5 kg

DRUGS (4)
  1. FOLIC ACID. [Concomitant]
     Active Substance: FOLIC ACID
     Route: 065
     Dates: start: 2011
  2. REMICADE [Suspect]
     Active Substance: INFLIXIMAB
     Indication: CROHN^S DISEASE
     Route: 042
     Dates: start: 20130313
  3. SULFASALAZINE. [Concomitant]
     Active Substance: SULFASALAZINE
     Route: 065
     Dates: start: 2008
  4. RIFAXIMIN [Concomitant]
     Active Substance: RIFAXIMIN
     Route: 065
     Dates: start: 20121026

REACTIONS (2)
  - Spinal cord compression [Not Recovered/Not Resolved]
  - Metastatic lymphoma [Unknown]

NARRATIVE: CASE EVENT DATE: 20160315
